FAERS Safety Report 7447386-1 (Version None)
Quarter: 2011Q2

REPORT INFORMATION
  Report Type: 
  Country: None (occurrence: None)
  Receive Date: 20110429
  Receipt Date: 20110203
  Transmission Date: 20111010
  Serious: No
  Sender: FDA-Public Use
  Company Number: US-ASTRAZENECA-2011SE07867

PATIENT
  Age: 65 Year
  Sex: Female

DRUGS (5)
  1. NEXIUM [Suspect]
     Route: 048
  2. NEXIUM [Suspect]
     Route: 048
  3. CRESTOR [Suspect]
     Route: 048
  4. PRILOSEC [Suspect]
     Route: 048
  5. PRILOSEC OTC [Suspect]
     Route: 048

REACTIONS (2)
  - ENDOSCOPY [None]
  - DRUG INEFFECTIVE [None]
